FAERS Safety Report 5291966-9 (Version None)
Quarter: 2007Q2

REPORT INFORMATION
  Report Type: 
  Country: None (occurrence: None)
  Receive Date: 20070404
  Receipt Date: 20070321
  Transmission Date: 20071010
  Serious: Yes (Hospitalization, Other)
  Sender: FDA-Public Use
  Company Number: MEDI-0005516

PATIENT
  Age: 5 Month
  Sex: Female
  Weight: 3.5 kg

DRUGS (1)
  1. SYNAGIS [Suspect]
     Indication: ANTIVIRAL PROPHYLAXIS
     Dates: start: 20070111, end: 20070111

REACTIONS (8)
  - APNOEA [None]
  - ORAL INTAKE REDUCED [None]
  - PNEUMONIA [None]
  - RHINORRHOEA [None]
  - SHOCK [None]
  - SKIN DISCOLOURATION [None]
  - SNEEZING [None]
  - VOMITING [None]
